FAERS Safety Report 6004820-1 (Version None)
Quarter: 2008Q4

REPORT INFORMATION
  Report Type: 
  Country: None (occurrence: None)
  Receive Date: 20081215
  Receipt Date: 20081020
  Transmission Date: 20090506
  Serious: Yes (Other)
  Sender: FDA-Public Use
  Company Number: 08-562

PATIENT
  Age: 75 Year
  Sex: Female

DRUGS (4)
  1. ALEVE [Suspect]
     Indication: PAIN
     Dosage: 660 MG, DAILY, ORAL : 660 MG, DAILY, ORAL
     Route: 048
     Dates: start: 20070101
  2. ALEVE [Suspect]
     Indication: PAIN
     Dosage: 660 MG, DAILY, ORAL : 660 MG, DAILY, ORAL
     Route: 048
     Dates: start: 20070101
  3. ALEVE [Suspect]
  4. LAVOXIL [Concomitant]

REACTIONS (1)
  - RECTAL HAEMORRHAGE [None]
